FAERS Safety Report 7127029-7 (Version None)
Quarter: 2010Q4

REPORT INFORMATION
  Report Type: 
  Country: None (occurrence: None)
  Receive Date: 20101129
  Receipt Date: 20100112
  Transmission Date: 20110411
  Serious: No
  Sender: FDA-Public Use
  Company Number: US-PFIZER INC-2010005450

PATIENT
  Sex: Male
  Weight: 78 kg

DRUGS (8)
  1. VIAGRA [Suspect]
     Indication: ERECTILE DYSFUNCTION
     Dosage: FREQUENCY: AS NEEDED,
     Route: 048
     Dates: end: 20100105
  2. AMLODIPINE [Concomitant]
     Indication: HYPERTENSION
     Dosage: 5 MG, 1X/DAY
  3. SPIRIVA [Concomitant]
     Indication: CHRONIC OBSTRUCTIVE PULMONARY DISEASE
     Dosage: 15 UG, UNK
     Route: 055
  4. XALATAN [Concomitant]
     Indication: GLAUCOMA
     Dosage: 1.5 UG, 1X/DAY
     Route: 047
  5. LUMIGAN [Concomitant]
     Indication: GLAUCOMA
     Dosage: UNK
     Route: 047
  6. COSOPT [Concomitant]
     Indication: GLAUCOMA
     Dosage: FREQUENCY: 2X/DAY,
     Route: 047
  7. TESTOSTERONE ENANTATE [Concomitant]
     Dosage: 75 MG BIWEEKLY
  8. BENAZEPRIL [Concomitant]
     Indication: HYPERTENSION
     Dosage: 50 MG, 1X/DAY

REACTIONS (1)
  - DIZZINESS [None]
